FAERS Safety Report 6453619-0 (Version None)
Quarter: 2009Q4

REPORT INFORMATION
  Report Type: 
  Country: None (occurrence: None)
  Receive Date: 20091124
  Receipt Date: 20091111
  Transmission Date: 20100525
  Serious: Yes (Hospitalization)
  Sender: FDA-Public Use
  Company Number: PHHY2009CH49927

PATIENT
  Age: 88 Year
  Sex: Female

DRUGS (7)
  1. VOLTAREN [Suspect]
     Indication: PAIN
     Dosage: 50 MG, PRN
     Dates: start: 20090905, end: 20090910
  2. MARCUMAR [Interacting]
     Indication: ATRIAL FLUTTER
     Dosage: UNK
     Dates: end: 20090910
  3. CONCOR [Concomitant]
     Dosage: 5 MG PER DAY
  4. TORSEMIDE [Concomitant]
     Dosage: 10 MG PER DAY
  5. PANTOZOL [Concomitant]
     Dosage: 1 DF PER DAY
  6. ACTONEL [Concomitant]
     Dosage: 35 MG PER WEEK
  7. DAFALGAN [Concomitant]
     Dosage: 4 G PER DAY

REACTIONS (10)
  - CARDIAC FAILURE [None]
  - DRUG INTERACTION [None]
  - EJECTION FRACTION DECREASED [None]
  - FALL [None]
  - HAEMATOMA [None]
  - HAEMORRHAGIC ANAEMIA [None]
  - INTERNATIONAL NORMALISED RATIO INCREASED [None]
  - OEDEMA PERIPHERAL [None]
  - RENAL FAILURE ACUTE [None]
  - RENAL FAILURE CHRONIC [None]
